FAERS Safety Report 4365839-X (Version None)
Quarter: 2004Q2

REPORT INFORMATION
  Report Type: 
  Country: None (occurrence: None)
  Receive Date: 20040521
  Receipt Date: 20040506
  Transmission Date: 20050107
  Serious: Yes (Life-Threatening, Hospitalization)
  Sender: FDA-Public Use
  Company Number: S04-AUS-01944-01

PATIENT
  Age: 31 Year
  Sex: Female

DRUGS (1)
  1. CERVIDIL [Suspect]
     Dosage: 10 MG ONCE VG
     Route: 067
     Dates: start: 20040331, end: 20040401

REACTIONS (10)
  - AGITATION [None]
  - ARTIFICIAL RUPTURE OF MEMBRANES [None]
  - BACK PAIN [None]
  - DRUG EXPOSURE DURING PREGNANCY [None]
  - MUSCLE RIGIDITY [None]
  - PAIN [None]
  - PRECIPITATE LABOUR [None]
  - PREMATURE SEPARATION OF PLACENTA [None]
  - UTERINE DISORDER [None]
  - UTERINE HYPERTONUS [None]
